FAERS Safety Report 24861375 (Version 1)
Quarter: 2025Q1

REPORT INFORMATION
  Report Type: Spontaneous
  Country: US (occurrence: US)
  Receive Date: 20250120
  Receipt Date: 20250120
  Transmission Date: 20250409
  Serious: No
  Sender: Kenvue
  Company Number: US-KENVUE-20241207637

PATIENT
  Sex: Male

DRUGS (8)
  1. IMODIUM [Suspect]
     Active Substance: LOPERAMIDE HYDROCHLORIDE
     Indication: Diarrhoea
     Route: 065
  2. OFEV [Concomitant]
     Active Substance: NINTEDANIB
     Indication: Idiopathic pulmonary fibrosis
     Dosage: 300 MILLIGRAM, TWICE A DAY
     Route: 048
     Dates: start: 20220901
  3. OFEV [Concomitant]
     Active Substance: NINTEDANIB
     Route: 048
  4. MAGNESIUM [Concomitant]
     Active Substance: MAGNESIUM
     Indication: Product used for unknown indication
     Route: 048
  5. TRULICITY [Concomitant]
     Active Substance: DULAGLUTIDE
     Indication: Product used for unknown indication
     Route: 065
  6. MYCOPHENOLATE MOFETIL [Concomitant]
     Active Substance: MYCOPHENOLATE MOFETIL
     Indication: Product used for unknown indication
     Route: 065
  7. TAMSULOSIN [Concomitant]
     Active Substance: TAMSULOSIN
     Indication: Nephrolithiasis
     Route: 065
  8. OXYCODONE [Concomitant]
     Active Substance: OXYCODONE
     Indication: Nephrolithiasis
     Route: 065

REACTIONS (3)
  - Diarrhoea [Not Recovered/Not Resolved]
  - Product dose omission issue [Unknown]
  - Constipation [Unknown]
